FAERS Safety Report 12981988 (Version 1)
Quarter: 2016Q4

REPORT INFORMATION
  Report Type: Spontaneous
  Country: US (occurrence: US)
  Receive Date: 20161129
  Receipt Date: 20161129
  Transmission Date: 20170207
  Serious: Yes (Other)
  Sender: FDA-Public Use
  Company Number: US-PURDUE PHARMA-USA-2016-0134929

PATIENT
  Age: 53 Year
  Sex: Female

DRUGS (1)
  1. BUTRANS [Suspect]
     Active Substance: BUPRENORPHINE
     Indication: PAIN
     Dosage: 10 MCG/HR, WEEKLY
     Route: 062
     Dates: start: 20161111, end: 20161120

REACTIONS (17)
  - Suicidal ideation [Recovering/Resolving]
  - Activities of daily living impaired [Recovering/Resolving]
  - Drug withdrawal syndrome [Recovering/Resolving]
  - Logorrhoea [Recovering/Resolving]
  - Dizziness [Recovering/Resolving]
  - Insomnia [Recovering/Resolving]
  - Mania [Not Recovered/Not Resolved]
  - Abnormal behaviour [Recovering/Resolving]
  - Balance disorder [Recovering/Resolving]
  - Muscle spasms [Recovering/Resolving]
  - Crying [Recovering/Resolving]
  - Mental disorder [Recovering/Resolving]
  - Drug effect increased [Recovering/Resolving]
  - Agitation [Recovering/Resolving]
  - Tremor [Recovering/Resolving]
  - Screaming [Recovering/Resolving]
  - Irritability [Recovering/Resolving]

NARRATIVE: CASE EVENT DATE: 201611
